FAERS Safety Report 20637559 (Version 2)
Quarter: 2022Q2

REPORT INFORMATION
  Report Type: Report from Study
  Country: IT (occurrence: IT)
  Receive Date: 20220325
  Receipt Date: 20220616
  Transmission Date: 20220721
  Serious: Yes (Other)
  Sender: FDA-Public Use
  Company Number: None

PATIENT
  Age: 80 Year
  Sex: Female

DRUGS (8)
  1. BISOPROLOL [Suspect]
     Active Substance: BISOPROLOL
     Dosage: 1.25 MG; BISOPROLOL FUMARATE
  2. BUTHIAZIDE\CANRENOATE POTASSIUM [Suspect]
     Active Substance: BUTHIAZIDE\CANRENOATE POTASSIUM
     Dosage: 0.5 DF; KADIUR 50 MG + 5 MG TABLETS COATED WITH FILM
  3. HYDROCHLOROTHIAZIDE\OLMESARTAN MEDOXOMIL [Concomitant]
     Active Substance: HYDROCHLOROTHIAZIDE\OLMESARTAN MEDOXOMIL
     Dosage: 1 DF; OLPREZIDE 20 MG / 25 MG TABLETS COATED WITH FILM
     Route: 048
  4. XARELTO [Concomitant]
     Active Substance: RIVAROXABAN
     Dosage: 15 MG; XARELTO 15 MG FILM-COATED TABLETS
     Route: 048
  5. MINITRAN [Concomitant]
     Active Substance: NITROGLYCERIN
     Dosage: 5 MG; MINITRAN 5 MG / 24 HOURS TRANSDERMAL PATCHES
     Route: 062
  6. CORDARONE [Concomitant]
     Active Substance: AMIODARONE HYDROCHLORIDE
     Dosage: 200 MG; CORDARONE 200 MG TABLETS
     Route: 048
  7. LEVOTHYROXINE SODIUM [Concomitant]
     Active Substance: LEVOTHYROXINE SODIUM
     Dosage: 50 MCG; EUTIROX 50 MICROGRAMS TABLETS
     Route: 048
  8. LEVOTHYROXINE SODIUM [Concomitant]
     Active Substance: LEVOTHYROXINE SODIUM
     Dosage: 75 MCG; EUTIROX 75 MICROGRAMS TABLETS
     Route: 048

REACTIONS (3)
  - Bradycardia [Recovering/Resolving]
  - Hyperkalaemia [Recovering/Resolving]
  - Asthenia [Recovering/Resolving]

NARRATIVE: CASE EVENT DATE: 20211020
